FAERS Safety Report 5504141-7 (Version None)
Quarter: 2007Q4

REPORT INFORMATION
  Report Type: 
  Country: None (occurrence: None)
  Receive Date: 20071101
  Receipt Date: 20071029
  Transmission Date: 20080405
  Serious: Yes (Other)
  Sender: FDA-Public Use
  Company Number: A0690326A

PATIENT
  Age: 47 Year
  Sex: Male

DRUGS (4)
  1. LAMICTAL [Suspect]
     Route: 048
     Dates: start: 20060801
  2. COLD MEDICINE (UNSPECIFIED) [Suspect]
     Route: 048
     Dates: start: 20071022, end: 20071023
  3. LYRICA [Concomitant]
  4. KLONOPIN [Concomitant]

REACTIONS (6)
  - ADVERSE EVENT [None]
  - DIPLOPIA [None]
  - DRUG INTERACTION [None]
  - HYPOGLYCAEMIA [None]
  - NASOPHARYNGITIS [None]
  - VISION BLURRED [None]
